FAERS Safety Report 5678287-7 (Version None)
Quarter: 2008Q1

REPORT INFORMATION
  Report Type: 
  Country: None (occurrence: None)
  Receive Date: 20080325
  Receipt Date: 20080325
  Transmission Date: 20080703
  Serious: Yes (Other)
  Sender: FDA-Public Use
  Company Number: None

PATIENT
  Sex: Female
  Weight: 113 kg

DRUGS (1)
  1. HEPARIN [Suspect]
     Dosage: 5000 UNITS BOLUS IV BOLUS
     Route: 040
     Dates: start: 20080318, end: 20080318

REACTIONS (1)
  - COAGULATION TIME SHORTENED [None]
